FAERS Safety Report 4893724-3 (Version None)
Quarter: 2006Q1

REPORT INFORMATION
  Report Type: 
  Country: None (occurrence: None)
  Receive Date: 20060127
  Receipt Date: 20060118
  Transmission Date: 20060701
  Serious: Yes (Hospitalization)
  Sender: FDA-Public Use
  Company Number: DE-GLAXOSMITHKLINE-B0407100A

PATIENT
  Age: 54 Year
  Sex: Male
  Weight: 86.3 kg

DRUGS (2)
  1. GW433908 [Suspect]
     Indication: HIV INFECTION
     Dosage: 1400MG PER DAY
     Route: 048
     Dates: start: 20011029
  2. RITONAVIR [Suspect]
     Indication: HIV INFECTION
     Dosage: 200MG PER DAY
     Route: 048
     Dates: start: 20011029

REACTIONS (1)
  - FIBROCYSTIC BREAST DISEASE [None]
